FAERS Safety Report 5241479-5 (Version None)
Quarter: 2007Q1

REPORT INFORMATION
  Report Type: 
  Country: None (occurrence: None)
  Receive Date: 20070220
  Receipt Date: 20070215
  Transmission Date: 20070707
  Serious: Yes (Hospitalization)
  Sender: FDA-Public Use
  Company Number: US-GLAXOSMITHKLINE-A0639708A

PATIENT
  Age: 25 Year
  Sex: Female

DRUGS (2)
  1. ONDANSETRON HCL [Suspect]
     Indication: PROPHYLAXIS OF NAUSEA AND VOMITING
     Dosage: 4MG PER DAY
     Route: 048
     Dates: start: 20061201
  2. FOLIC ACID [Concomitant]
     Route: 048

REACTIONS (4)
  - DRUG EXPOSURE DURING PREGNANCY [None]
  - FLANK PAIN [None]
  - NAUSEA [None]
  - NEPHROLITHIASIS [None]
